FAERS Safety Report 21092093 (Version 1)
Quarter: 2022Q3

REPORT INFORMATION
  Report Type: Spontaneous
  Country: US (occurrence: US)
  Receive Date: 20220718
  Receipt Date: 20220718
  Transmission Date: 20221027
  Serious: No
  Sender: FDA-Public Use
  Company Number: US-NOVARTISTESTPH-NVSC2022US160992

PATIENT
  Sex: Female

DRUGS (1)
  1. KYMRIAH [Suspect]
     Active Substance: TISAGENLECLEUCEL
     Indication: Product used for unknown indication
     Dosage: 12 ML, ONCE/SINGLE (1.3X10^8)
     Route: 042
     Dates: start: 20220613, end: 20220613

REACTIONS (1)
  - Remission not achieved [Not Recovered/Not Resolved]
